FAERS Safety Report 4939384-4 (Version None)
Quarter: 2006Q1

REPORT INFORMATION
  Report Type: 
  Country: None (occurrence: None)
  Receive Date: 20060306
  Receipt Date: 20060222
  Transmission Date: 20060701
  Serious: Yes (Hospitalization)
  Sender: FDA-Public Use
  Company Number: CIP06000389

PATIENT
  Age: 83 Year
  Sex: Female

DRUGS (7)
  1. FURADANTIN [Suspect]
     Dosage: 1 DF DAILY, ORAL
     Route: 048
     Dates: end: 20060205
  2. FUROSEMIDE [Suspect]
     Dosage: 20 MG, DAILY, ORAL
     Route: 048
     Dates: end: 20060205
  3. ASPIRIN [Suspect]
     Dosage: 160 MG DAILY, ORAL
     Route: 048
     Dates: start: 20010615, end: 20060205
  4. FENOFIBRATE [Suspect]
     Dosage: 1 DF DAILY, ORAL
     Route: 048
     Dates: end: 20060205
  5. CELECTOL [Concomitant]
  6. RAMIPRIL [Concomitant]
  7. LEXOMIL (BROMAZEPAM) [Concomitant]

REACTIONS (2)
  - LOWER GASTROINTESTINAL HAEMORRHAGE [None]
  - RECTAL HAEMORRHAGE [None]
